FAERS Safety Report 4592408-9 (Version None)
Quarter: 2005Q1

REPORT INFORMATION
  Report Type: 
  Country: None (occurrence: None)
  Receive Date: 20050228
  Receipt Date: 20050114
  Transmission Date: 20050727
  Serious: No
  Sender: FDA-Public Use
  Company Number: US-BRISTOL-MYERS SQUIBB COMPANY-12827499

PATIENT
  Age: 30 Year
  Sex: Male

DRUGS (4)
  1. ABILIFY [Suspect]
     Indication: SCHIZOPHRENIA
     Dosage: INITIATED AT 5 MG/DAY; AFTER 7 DAYS, INCREASED TO 10 MG AND SUBSEQUENTLY DISCONTINUED.
     Route: 048
  2. SEROQUEL [Concomitant]
  3. ZYPREXA [Concomitant]
  4. EFFEXOR [Concomitant]

REACTIONS (6)
  - AKATHISIA [None]
  - DYSTONIA [None]
  - EMOTIONAL DISTRESS [None]
  - FEELING ABNORMAL [None]
  - RESPIRATORY RATE INCREASED [None]
  - TONGUE DISORDER [None]
